FAERS Safety Report 15809416 (Version 1)
Quarter: 2019Q1

REPORT INFORMATION
  Report Type: Spontaneous
  Country: GB (occurrence: GB)
  Receive Date: 20190111
  Receipt Date: 20190111
  Transmission Date: 20190417
  Serious: Yes (Other)
  Sender: FDA-Public Use
  Company Number: GB-TEVA-2019-GB-997190

PATIENT
  Age: 63 Year
  Sex: Female
  Weight: 71 kg

DRUGS (18)
  1. K-Y [Concomitant]
     Dosage: USE AS DIRECTED
     Dates: start: 20151020, end: 20181218
  2. BETAHISTINE [Concomitant]
     Active Substance: BETAHISTINE
     Dosage: 3 DOSAGE FORMS DAILY;
     Dates: start: 20170317, end: 20181218
  3. FOLIC ACID. [Concomitant]
     Active Substance: FOLIC ACID
     Dosage: 1 DOSAGE FORMS DAILY;
     Dates: start: 20170508
  4. APIXABAN [Concomitant]
     Active Substance: APIXABAN
     Dosage: 2 DOSAGE FORMS DAILY;
     Dates: start: 20170321
  5. CYANOCOBALAMIN. [Concomitant]
     Active Substance: CYANOCOBALAMIN
     Dosage: 1 DOSAGE FORMS DAILY;
     Dates: start: 20170508
  6. AMITRIPTYLINE HYDROCHLORIDE. [Concomitant]
     Active Substance: AMITRIPTYLINE HYDROCHLORIDE
     Dosage: TAKE AS DIRECTED
     Dates: start: 20170630
  7. TRAMADOL. [Concomitant]
     Active Substance: TRAMADOL
     Dosage: ONE- TWO TO BE TAKEN FOUR TIMES DAILY.
     Dates: start: 20161118, end: 20181218
  8. MICRALAX [Concomitant]
     Dosage: INSERT
     Dates: start: 20111118, end: 20181218
  9. SUMATRIPTAN. [Concomitant]
     Active Substance: SUMATRIPTAN
     Indication: HEADACHE
     Dosage: PUFF
     Dates: start: 20180802
  10. LOPERAMIDE [Concomitant]
     Active Substance: LOPERAMIDE
     Dosage: AS DIRECTED
     Dates: start: 20160613, end: 20181218
  11. DIORALYTE RELIEF [Concomitant]
     Dates: start: 20181026, end: 20181123
  12. PHENOXYMETHYLPENICILLIN [Suspect]
     Active Substance: PENICILLIN V
     Dates: start: 20181217
  13. FULTIUM-D3 [Concomitant]
     Active Substance: CHOLECALCIFEROL
     Dosage: 1 DOSAGE FORMS DAILY;
     Dates: start: 20180608
  14. GLYCEROL [Concomitant]
     Active Substance: GLYCERIN
     Dosage: INSERT
     Dates: start: 20151020, end: 20181218
  15. PROGYNOVA [Concomitant]
     Active Substance: ESTRADIOL VALERATE
     Dosage: 1 DOSAGE FORMS DAILY;
     Dates: start: 20090618
  16. MIRTAZAPINE. [Concomitant]
     Active Substance: MIRTAZAPINE
     Dosage: 1 DOSAGE FORMS DAILY; NIGHT
     Dates: start: 20170803, end: 20181218
  17. SILVERCEL [Concomitant]
     Dosage: USE AS DIRECTED
     Dates: start: 20130812, end: 20181218
  18. OMEPRAZOLE. [Concomitant]
     Active Substance: OMEPRAZOLE
     Dosage: 1 DOSAGE FORMS DAILY; AS DIRECTED.
     Dates: start: 20090618, end: 20181218

REACTIONS (1)
  - Drug hypersensitivity [Unknown]

NARRATIVE: CASE EVENT DATE: 20181219
